FAERS Safety Report 5430022-3 (Version None)
Quarter: 2007Q3

REPORT INFORMATION
  Report Type: 
  Country: None (occurrence: None)
  Receive Date: 20070829
  Receipt Date: 20070820
  Transmission Date: 20080115
  Serious: Yes (Other)
  Sender: FDA-Public Use
  Company Number: JP-PFIZER INC-2007062457

PATIENT
  Sex: Male
  Weight: 48 kg

DRUGS (3)
  1. ZYVOX [Suspect]
     Indication: SPONDYLITIS
     Route: 042
     Dates: start: 20070423, end: 20070513
  2. UNASYN [Suspect]
     Indication: SPONDYLITIS
     Route: 042
     Dates: start: 20070403, end: 20070409
  3. VANCOMYCIN HYDROCHLORIDE [Concomitant]
     Route: 042
     Dates: start: 20070409, end: 20070422

REACTIONS (2)
  - DRUG INEFFECTIVE [None]
  - PANCYTOPENIA [None]
